FAERS Safety Report 17865892 (Version 9)
Quarter: 2025Q3

REPORT INFORMATION
  Report Type: Spontaneous
  Country: US (occurrence: US)
  Receive Date: 20200605
  Receipt Date: 20250811
  Transmission Date: 20251021
  Serious: No
  Sender: PFIZER
  Company Number: US-PFIZER INC-2020219776

PATIENT
  Age: 78 Year
  Sex: Female

DRUGS (3)
  1. ESTRING [Suspect]
     Active Substance: ESTRADIOL
     Indication: Atrophic vulvovaginitis
     Route: 067
     Dates: start: 20200205
  2. ESTRING [Suspect]
     Active Substance: ESTRADIOL
     Indication: Urinary tract infection
     Route: 067
  3. ESTRING [Suspect]
     Active Substance: ESTRADIOL
     Dosage: 1 DEVICE EVERY 3 MONTHS
     Route: 067

REACTIONS (1)
  - Device use issue [Unknown]
